FAERS Safety Report 20660348 (Version 3)
Quarter: 2022Q2

REPORT INFORMATION
  Report Type: Report from Study
  Country: TR (occurrence: None)
  Receive Date: 20220331
  Receipt Date: 20220413
  Transmission Date: 20220721
  Serious: Yes (Hospitalization)
  Sender: FDA-Public Use
  Company Number: TR-ROCHE-3039321

PATIENT
  Age: 57 Year
  Sex: Female
  Weight: 67.2 kg

DRUGS (18)
  1. RITUXIMAB [Suspect]
     Active Substance: RITUXIMAB
     Indication: Non-Hodgkin^s lymphoma unspecified histology indolent
     Dosage: START DATE OF MOST RECENT DOSE OF STUDY DRUG (558 MG) PRIOR TO SAE ON 01/FEB/2022 AT 7: 40 PM?FREQUE
     Route: 041
     Dates: start: 20220110
  2. LENALIDOMIDE [Suspect]
     Active Substance: LENALIDOMIDE
     Indication: Non-Hodgkin^s lymphoma unspecified histology indolent
     Dosage: START DATE OF MOST RECENT DOSE OF STUDY DRUG (20 MG) PRIOR TO SAE ON 23/FEB/2022
     Route: 048
     Dates: start: 20220110
  3. METOPROLOL [Concomitant]
     Active Substance: METOPROLOL
     Route: 048
     Dates: start: 20180524
  4. PANTOPRAZOLE SODIUM [Concomitant]
     Active Substance: PANTOPRAZOLE SODIUM
     Indication: Prophylaxis
     Route: 048
     Dates: start: 2019
  5. PERINDOPRIL [Concomitant]
     Active Substance: PERINDOPRIL
     Route: 048
     Dates: start: 20180528
  6. DICLOFENAC DIETHYLAMINE [Concomitant]
     Active Substance: DICLOFENAC DIETHYLAMINE
     Dates: start: 20220214, end: 20220221
  7. KETORAL SHAMPOO [Concomitant]
     Route: 061
     Dates: start: 20220214, end: 20220221
  8. METHYLPREDNISOLONE ACEPONATE [Concomitant]
     Active Substance: METHYLPREDNISOLONE ACEPONATE
     Route: 061
     Dates: start: 20220214, end: 20220221
  9. VOLTAREN [Concomitant]
     Active Substance: DICLOFENAC SODIUM
     Route: 048
     Dates: start: 20220216, end: 20220224
  10. METHYLPREDNISOLONE [Concomitant]
     Active Substance: METHYLPREDNISOLONE
     Route: 048
     Dates: start: 20210216, end: 20220224
  11. AUGMENTIN [Concomitant]
     Active Substance: AMOXICILLIN\CLAVULANATE POTASSIUM
     Route: 048
     Dates: start: 20210216, end: 20220224
  12. ADELEKS [Concomitant]
     Route: 030
     Dates: start: 20220216, end: 20220216
  13. HUMAN RED BLOOD CELL [Concomitant]
     Active Substance: HUMAN RED BLOOD CELL
     Dates: start: 20211227
  14. HUMAN RED BLOOD CELL [Concomitant]
     Active Substance: HUMAN RED BLOOD CELL
     Dates: start: 20220124
  15. KALINOR [Concomitant]
     Dosage: MEDICATION DOSE 1 TABLET
     Route: 048
     Dates: start: 20220124, end: 20220131
  16. KYTRIL [Concomitant]
     Active Substance: GRANISETRON HYDROCHLORIDE
     Route: 048
     Dates: start: 20220103, end: 20220107
  17. ACETAMINOPHEN\BUTYLSCOPOLAMINE BROMIDE [Concomitant]
     Active Substance: ACETAMINOPHEN\BUTYLSCOPOLAMINE BROMIDE
     Route: 048
     Dates: start: 20220103, end: 20220107
  18. FLAGYL [Concomitant]
     Active Substance: METRONIDAZOLE\METRONIDAZOLE HYDROCHLORIDE
     Route: 048
     Dates: start: 20220103, end: 20220107

REACTIONS (1)
  - COVID-19 [Recovered/Resolved]

NARRATIVE: CASE EVENT DATE: 20220224
